FAERS Safety Report 12471386 (Version 1)
Quarter: 2016Q2

REPORT INFORMATION
  Report Type: Spontaneous
  Country: CA (occurrence: CA)
  Receive Date: 20160616
  Receipt Date: 20160616
  Transmission Date: 20160815
  Serious: Yes (Hospitalization, Other)
  Sender: FDA-Public Use
  Company Number: CA-KALEO, INC-EPIN20160001

PATIENT
  Age: 30 Year
  Sex: Female

DRUGS (1)
  1. EPINEPHRINE. [Suspect]
     Active Substance: EPINEPHRINE
     Indication: HAEMOSTASIS
     Dosage: 1:1000 ONCE

REACTIONS (10)
  - Chest discomfort [None]
  - Blood pressure systolic decreased [None]
  - Skin discolouration [None]
  - Echocardiogram abnormal [Recovering/Resolving]
  - Ejection fraction decreased [None]
  - Stress cardiomyopathy [Recovering/Resolving]
  - Electrocardiogram ST segment depression [None]
  - Headache [None]
  - Blood pressure systolic increased [None]
  - Nausea [None]
